FAERS Safety Report 8507421-6 (Version None)
Quarter: 2012Q3

REPORT INFORMATION
  Report Type: 
  Country: None (occurrence: None)
  Receive Date: 20120712
  Receipt Date: 20110223
  Transmission Date: 20120928
  Serious: Yes (Hospitalization)
  Sender: FDA-Public Use
  Company Number: GB-AMGEN-GBRCT2010007134

PATIENT
  Age: 30 Year

DRUGS (3)
  1. MST                                /00036302/ [Concomitant]
     Dosage: 20 MG, UNK
     Dates: start: 20101116
  2. DENOSUMAB [Suspect]
     Indication: METASTASES TO BONE
     Dosage: 1.7 ML, QMO
     Route: 058
     Dates: start: 20090918
  3. NYSTATIN [Concomitant]

REACTIONS (4)
  - PAIN [None]
  - HYPERHIDROSIS [None]
  - NAUSEA [None]
  - LETHARGY [None]
